FAERS Safety Report 7919556-7 (Version None)
Quarter: 2011Q4

REPORT INFORMATION
  Report Type: 
  Country: None (occurrence: None)
  Receive Date: 20111117
  Receipt Date: 20111111
  Transmission Date: 20120403
  Serious: Yes (Hospitalization)
  Sender: FDA-Public Use
  Company Number: US-CELGENEUS-163-21880-11111856

PATIENT
  Sex: Female

DRUGS (10)
  1. COREG [Concomitant]
     Route: 065
  2. ASCORBIC ACID [Concomitant]
     Route: 065
  3. PROTONIX [Concomitant]
     Route: 065
  4. REVLIMID [Suspect]
     Indication: MULTIPLE MYELOMA
     Dosage: 15 MILLIGRAM
     Route: 048
     Dates: start: 20100730, end: 20110101
  5. IRON [Concomitant]
     Route: 065
  6. XALATAN [Concomitant]
     Route: 065
  7. ACETAMINOPHEN [Concomitant]
     Route: 065
  8. ASPIRIN [Concomitant]
     Dosage: 81 MILLIGRAM
     Route: 065
  9. CALCIUM CARBONATE [Concomitant]
     Route: 065
  10. FOLIC ACID [Concomitant]
     Route: 065

REACTIONS (1)
  - AMNESIA [None]
